FAERS Safety Report 6519754-3 (Version None)
Quarter: 2009Q4

REPORT INFORMATION
  Report Type: 
  Country: None (occurrence: None)
  Receive Date: 20091228
  Receipt Date: 20091215
  Transmission Date: 20100525
  Serious: Yes (Hospitalization)
  Sender: FDA-Public Use
  Company Number: SE-PFIZER INC-2009310257

PATIENT
  Sex: Male
  Weight: 86 kg

DRUGS (5)
  1. SOMATROPIN [Suspect]
     Indication: HYPOPITUITARISM
     Dosage: 0.3 MG, 1X/DAY
     Route: 058
     Dates: start: 19990401
  2. DESMOPRESSIN ACETATE [Suspect]
     Indication: HORMONE REPLACEMENT THERAPY
     Dosage: UNK
  3. CORTISONE [Suspect]
     Indication: HORMONE REPLACEMENT THERAPY
     Dosage: 30-40 MG 2X/DAY
     Route: 048
     Dates: start: 19960101
  4. LEVOTHYROXINE SODIUM [Concomitant]
     Indication: HORMONE REPLACEMENT THERAPY
     Dosage: UNK
  5. TESTOSTERONE [Concomitant]
     Indication: HORMONE REPLACEMENT THERAPY
     Dosage: UNK

REACTIONS (2)
  - HYPONATRAEMIA [None]
  - PYREXIA [None]
